FAERS Safety Report 21075295 (Version 1)
Quarter: 2022Q3

REPORT INFORMATION
  Report Type: Spontaneous
  Country: US (occurrence: US)
  Receive Date: 20220713
  Receipt Date: 20220713
  Transmission Date: 20221027
  Serious: No
  Sender: FDA-Public Use
  Company Number: US-IDORSIA-000666-2022-US

PATIENT
  Age: 6 Decade
  Sex: Male

DRUGS (1)
  1. QUVIVIQ [Suspect]
     Active Substance: DARIDOREXANT
     Indication: Insomnia
     Dosage: 50 MG, QD
     Route: 048
     Dates: start: 20220617, end: 20220618

REACTIONS (3)
  - Feeling abnormal [Unknown]
  - Autoscopy [Unknown]
  - Hallucination [Unknown]

NARRATIVE: CASE EVENT DATE: 20220617
